APPROVED DRUG PRODUCT: ERGOCALCIFEROL
Active Ingredient: ERGOCALCIFEROL
Strength: 50,000 IU
Dosage Form/Route: CAPSULE;ORAL
Application: A040833 | Product #001 | TE Code: AA
Applicant: CHARTWELL RX SCIENCES LLC
Approved: May 20, 2009 | RLD: No | RS: No | Type: RX